FAERS Safety Report 22800810 (Version 2)
Quarter: 2023Q4

REPORT INFORMATION
  Report Type: Report from Study
  Country: JP (occurrence: JP)
  Receive Date: 20230808
  Receipt Date: 20231002
  Transmission Date: 20240110
  Serious: Yes (Other)
  Sender: FDA-Public Use
  Company Number: JP-VIIV HEALTHCARE LIMITED-JP2018JPN132443

PATIENT

DRUGS (4)
  1. ABACAVIR SULFATE\DOLUTEGRAVIR SODIUM\LAMIVUDINE [Suspect]
     Active Substance: ABACAVIR SULFATE\DOLUTEGRAVIR SODIUM\LAMIVUDINE
     Indication: HIV infection
     Dosage: 1 DF, 1D
     Route: 048
     Dates: start: 20170523, end: 20210725
  2. DOVATO [Suspect]
     Active Substance: DOLUTEGRAVIR SODIUM\LAMIVUDINE
     Indication: HIV infection
     Dosage: 1 DF, 1D
     Dates: start: 20210726
  3. VARENICLINE TARTRATE [Concomitant]
     Active Substance: VARENICLINE TARTRATE
     Indication: Smoking cessation therapy
     Dosage: UNK
     Dates: start: 20180320, end: 20180511
  4. VARENICLINE TARTRATE [Concomitant]
     Active Substance: VARENICLINE TARTRATE
     Indication: Nicotine dependence

REACTIONS (13)
  - Stomatitis [Recovering/Resolving]
  - Blood creatinine increased [Recovering/Resolving]
  - Beta 2 microglobulin urine increased [Recovered/Resolved]
  - Dry skin [Recovering/Resolving]
  - Liver disorder [Recovered/Resolved]
  - Dry skin [Not Recovered/Not Resolved]
  - Stomatitis [Recovering/Resolving]
  - Hyperlipidaemia [Not Recovered/Not Resolved]
  - Solar dermatitis [Recovering/Resolving]
  - Cholelithiasis [Not Recovered/Not Resolved]
  - Rhinitis [Not Recovered/Not Resolved]
  - Weight increased [Recovered/Resolved]
  - Syphilis [Not Recovered/Not Resolved]

NARRATIVE: CASE EVENT DATE: 20210924
